FAERS Safety Report 12464298 (Version 1)
Quarter: 2016Q2

REPORT INFORMATION
  Report Type: Spontaneous
  Country: US (occurrence: US)
  Receive Date: 20160614
  Receipt Date: 20160614
  Transmission Date: 20160815
  Serious: Yes (Other)
  Sender: FDA-Public Use
  Company Number: US-AMGEN-USASP2016073917

PATIENT
  Age: 80 Year
  Sex: Female
  Weight: 63.5 kg

DRUGS (3)
  1. CELEBREX [Suspect]
     Active Substance: CELECOXIB
     Indication: PREVENTION OF ENDOMETRIAL HYPERPLASIA
     Dosage: 200 MG, QD
     Route: 065
     Dates: start: 2012
  2. PROLIA [Suspect]
     Active Substance: DENOSUMAB
     Indication: PRODUCT USED FOR UNKNOWN INDICATION
     Dosage: UNK
     Route: 065
  3. DILANTIN [Suspect]
     Active Substance: PHENYTOIN
     Indication: PARTIAL SEIZURES
     Dosage: 100 MG, TID
     Route: 065
     Dates: start: 1985

REACTIONS (4)
  - Pain in extremity [Unknown]
  - Arthritis [Unknown]
  - Knee arthroplasty [Unknown]
  - Back pain [Unknown]
